FAERS Safety Report 4679936-2 (Version None)
Quarter: 2005Q2

REPORT INFORMATION
  Report Type: 
  Country: None (occurrence: None)
  Receive Date: 20050602
  Receipt Date: 20050531
  Transmission Date: 20051028
  Serious: Yes (Death, Other)
  Sender: FDA-Public Use
  Company Number: PHFR2005GB01996

PATIENT
  Age: 40 Year
  Sex: Male

DRUGS (8)
  1. CLOZAPINE [Suspect]
     Indication: SCHIZOPHRENIA
     Dosage: 550MG/DAY
     Route: 048
     Dates: start: 20020101
  2. CLOZAPINE [Suspect]
     Dosage: 525MG/DAY
     Route: 048
     Dates: start: 20030101
  3. CLOZAPINE [Suspect]
     Dosage: 200MG MANE/300MG NOCTE
     Route: 048
     Dates: start: 20041124
  4. OMEPRAZOLE [Concomitant]
     Dosage: 20MG/DAY
     Route: 065
     Dates: start: 20020619
  5. ATORVASTATIN CALCIUM [Concomitant]
     Indication: TRANSIENT ISCHAEMIC ATTACK
     Dosage: 10 MG, QD
     Route: 065
     Dates: start: 20030710
  6. ACETYLSALICYLATE [Concomitant]
     Indication: TRANSIENT ISCHAEMIC ATTACK
     Dosage: 75 MG, QD
     Route: 065
     Dates: start: 20030828
  7. METOCLOPRAMIDE [Concomitant]
     Indication: VOMITING
     Dosage: 10 MG, TID
     Route: 065
     Dates: start: 20030909
  8. PIRENZEPINE [Concomitant]
     Indication: SALIVARY HYPERSECRETION
     Dosage: 25 MG, TID
     Route: 065
     Dates: start: 20040731

REACTIONS (12)
  - ABDOMINAL PAIN [None]
  - BALANCE DISORDER [None]
  - CONSTIPATION [None]
  - CYANOSIS [None]
  - GASTROINTESTINAL HAEMORRHAGE [None]
  - HEART RATE DECREASED [None]
  - HYPERHIDROSIS [None]
  - HYPOTENSION [None]
  - LOSS OF CONSCIOUSNESS [None]
  - MALAISE [None]
  - MYOCLONUS [None]
  - SUDDEN DEATH [None]
